FAERS Safety Report 15681371 (Version 6)
Quarter: 2019Q1

REPORT INFORMATION
  Report Type: Spontaneous
  Country: CA (occurrence: CA)
  Receive Date: 20181203
  Receipt Date: 20190124
  Transmission Date: 20190417
  Serious: Yes (Other)
  Sender: FDA-Public Use
  Company Number: CA-PFIZER INC-2018446766

PATIENT
  Age: 46 Year
  Sex: Female

DRUGS (14)
  1. TYLENOL ARTHRITIS PAIN [Concomitant]
     Active Substance: ACETAMINOPHEN
     Dosage: 3 DF, UNK
     Route: 048
  2. MAGNESIUM [Concomitant]
     Active Substance: MAGNESIUM
     Dosage: 250 MG, DAILY AT BEDTIME
  3. CORTIFOAM [Concomitant]
     Active Substance: HYDROCORTISONE ACETATE
     Dosage: UNK
     Dates: start: 20181130
  4. XELJANZ [Suspect]
     Active Substance: TOFACITINIB CITRATE
     Indication: COLITIS ULCERATIVE
     Dosage: 10 MG, 2X/DAY
     Route: 048
     Dates: start: 20181023
  5. NAPROXEN. [Concomitant]
     Active Substance: NAPROXEN
     Dosage: QHS (BEDTIME) AS NEEDED
  6. MEZAVANT [Concomitant]
     Active Substance: MESALAMINE
     Dosage: 4 DF (TABLETS), 2X/DAY
     Route: 048
  7. VITAMIN D [Concomitant]
     Active Substance: CHOLECALCIFEROL
     Dosage: 2000 IU, UNK
  8. VITAMIN E [Concomitant]
     Active Substance: .ALPHA.-TOCOPHEROL
     Dosage: UNK
  9. CALCIUM [Concomitant]
     Active Substance: CALCIUM
     Indication: SUPPLEMENTATION THERAPY
     Dosage: UNK
  10. SALOFALK GR [Concomitant]
     Dosage: ENEMA DAILY AT BEDTIME
     Route: 054
     Dates: start: 20181130
  11. VITAMIN A + BETA CAROTENE [Concomitant]
     Dosage: UNK
  12. VITAMIN B [Concomitant]
     Active Substance: VITAMIN B
     Dosage: UNK
  13. AMITRIPTYLINE [Concomitant]
     Active Substance: AMITRIPTYLINE
     Dosage: 30 MG, DAILY BEFORE SLEEP
  14. PEPCID AC [Concomitant]
     Active Substance: FAMOTIDINE
     Dosage: 2 DF (TABLETS), 2X/DAY

REACTIONS (10)
  - Nasopharyngitis [Not Recovered/Not Resolved]
  - Arthralgia [Not Recovered/Not Resolved]
  - Fibromyalgia [Unknown]
  - Headache [Recovered/Resolved]
  - Drug effect incomplete [Not Recovered/Not Resolved]
  - Abdominal pain [Not Recovered/Not Resolved]
  - Dizziness [Unknown]
  - Haematochezia [Not Recovered/Not Resolved]
  - Gait disturbance [Not Recovered/Not Resolved]
  - Fatigue [Unknown]
